FAERS Safety Report 5009890-5 (Version None)
Quarter: 2006Q2

REPORT INFORMATION
  Report Type: 
  Country: None (occurrence: None)
  Receive Date: 20060522
  Receipt Date: 20060510
  Transmission Date: 20061013
  Serious: Yes (Hospitalization, Other)
  Sender: FDA-Public Use
  Company Number: GXKR2006GB02646

PATIENT
  Age: 95 Year
  Sex: Female

DRUGS (12)
  1. RANITIDINE [Suspect]
     Indication: GASTROINTESTINAL DISORDER
     Dosage: 150 MG BID ORAL
     Route: 048
     Dates: start: 19980124, end: 20060407
  2. PAROXETINE HCL [Suspect]
     Indication: DEPRESSION
     Dosage: 30 MG QD ORAL
     Route: 048
     Dates: start: 19970419
  3. SPIRONOLACTONE [Suspect]
     Indication: POLYURIA
     Dosage: 25 MG QD ORAL
     Route: 048
     Dates: start: 19970407, end: 20060407
  4. TEMAZEPAM [Concomitant]
  5. ACETAMINOPHEN [Concomitant]
  6. LACTULOSE [Concomitant]
  7. METOCLOPRAMIDE [Concomitant]
  8. PILOCARPINE (PILOCARPINE) [Concomitant]
  9. XALACOM LATANOPROST, TIMOLOL MALEATE) [Concomitant]
  10. AZOPT (BRINAZOLAMIDE) [Concomitant]
  11. CALOGEN (CALCITONIN, SALMON) [Concomitant]
  12. PROCAL (SODIUM FLUORIDE) [Concomitant]

REACTIONS (2)
  - CONTUSION [None]
  - PLATELET COUNT DECREASED [None]
